FAERS Safety Report 6914039-5 (Version None)
Quarter: 2010Q3

REPORT INFORMATION
  Report Type: 
  Country: None (occurrence: None)
  Receive Date: 20100809
  Receipt Date: 20100728
  Transmission Date: 20110219
  Serious: Yes (Hospitalization, Other)
  Sender: FDA-Public Use
  Company Number: PHHY2010EC49726

PATIENT
  Age: 71 Year
  Sex: Male

DRUGS (3)
  1. DIOVAN [Suspect]
     Indication: HYPERTENSION
     Dosage: 1 FCT, QD 160 MG
     Route: 048
     Dates: start: 20070101, end: 20100729
  2. DIOVAN [Suspect]
     Dosage: 80 MG QD
     Route: 048
     Dates: start: 20070101, end: 20100729
  3. XATRAL [Concomitant]
     Indication: BENIGN PROSTATIC HYPERPLASIA
     Dosage: 10 MG OD EVERY SECOND DAY

REACTIONS (4)
  - DISCOMFORT [None]
  - PAIN [None]
  - PROSTATIC OPERATION [None]
  - URINARY TRACT INFECTION [None]
